FAERS Safety Report 8620490-8 (Version None)
Quarter: 2012Q3

REPORT INFORMATION
  Report Type: 
  Country: None (occurrence: None)
  Receive Date: 20120824
  Receipt Date: 20120711
  Transmission Date: 20120928
  Serious: No
  Sender: FDA-Public Use
  Company Number: US-009507513-1208USA000800

PATIENT

DRUGS (3)
  1. MIRALAX [Suspect]
     Indication: MEDICAL OBSERVATION
     Dosage: UNK, UNKNOWN
     Route: 048
  2. ASPIRIN [Concomitant]
     Indication: PRODUCT USED FOR UNKNOWN INDICATION
     Dosage: UNK, UNKNOWN
     Route: 065
  3. MIRALAX [Suspect]
     Indication: BOWEL PREPARATION

REACTIONS (4)
  - UNDERDOSE [None]
  - OFF LABEL USE [None]
  - ERUCTATION [None]
  - PAIN [None]
